FAERS Safety Report 19458588 (Version 1)
Quarter: 2021Q2

REPORT INFORMATION
  Report Type: Spontaneous
  Country: DE (occurrence: DE)
  Receive Date: 20210624
  Receipt Date: 20210624
  Transmission Date: 20210717
  Serious: Yes (Hospitalization)
  Sender: FDA-Public Use
  Company Number: DE-MYLANLABS-2021M1037541

PATIENT
  Age: 57 Year
  Sex: Female

DRUGS (3)
  1. SPIRONOLACTONE. [Suspect]
     Active Substance: SPIRONOLACTONE
     Indication: HYPOKALAEMIA
     Dosage: 200 MILLIGRAM, QDONCE DAILY (1?0?0)
     Route: 065
  2. RAMIPRIL. [Suspect]
     Active Substance: RAMIPRIL
     Indication: HYPOKALAEMIA
     Dosage: 5 MILLIGRAM, BIDTWICE A DAY (1?0?1),
     Route: 065
  3. POTASSIUM CHLORIDE. [Suspect]
     Active Substance: POTASSIUM CHLORIDE
     Indication: HYPOKALAEMIA
     Dosage: 80.25 MMOL/DAY
     Route: 065

REACTIONS (4)
  - Condition aggravated [Recovering/Resolving]
  - Hyperkalaemia [Recovering/Resolving]
  - Electrocardiogram PR prolongation [Unknown]
  - Electrocardiogram QRS complex prolonged [Unknown]
